FAERS Safety Report 8857166 (Version 3)
Quarter: 2013Q2

REPORT INFORMATION
  Report Type: Report from Study
  Country: HU (occurrence: HU)
  Receive Date: 20121024
  Receipt Date: 20130610
  Transmission Date: 20140414
  Serious: Yes (Hospitalization)
  Sender: FDA-Public Use
  Company Number: HU-ASTRAZENECA-2012SE80398

PATIENT
  Age: 29734 Day
  Sex: Male

DRUGS (8)
  1. STUDY PROCEDURE [Suspect]
     Indication: CORONARY ARTERY DISEASE
     Route: 065
  2. AZD6140 [Suspect]
     Indication: CORONARY ARTERY DISEASE
     Route: 048
     Dates: start: 20120606, end: 20121013
  3. AZD6140 [Suspect]
     Indication: CORONARY ARTERY DISEASE
     Route: 048
     Dates: start: 20121106
  4. ASPIRIN PROTECT [Suspect]
     Route: 048
  5. ATORVASTATIN [Concomitant]
     Indication: MYOCARDIAL ISCHAEMIA
     Route: 048
  6. BISOPROLOL [Concomitant]
     Indication: MYOCARDIAL ISCHAEMIA
     Route: 048
  7. PANTOPRAZOLE [Concomitant]
     Indication: HYPERCHLORHYDRIA
     Route: 048
  8. RENITEC [Concomitant]
     Indication: HYPERTENSION
     Route: 048
     Dates: end: 20121010

REACTIONS (1)
  - Iron deficiency anaemia [Recovered/Resolved]
